FAERS Safety Report 5214564-1 (Version None)
Quarter: 2006Q4

REPORT INFORMATION
  Report Type: 
  Country: None (occurrence: None)
  Receive Date: 20061113
  Receipt Date: 20060605
  Transmission Date: 20070319
  Serious: Yes (Hospitalization)
  Sender: FDA-Public Use
  Company Number: 2006-BP-06321BP

PATIENT
  Age: 68 Year
  Sex: Female

DRUGS (3)
  1. MICARDIS [Suspect]
     Indication: HYPERTENSION
     Dosage: 80 MG (80 MG, 1 TABLET QD), PO
     Route: 048
     Dates: start: 20050501
  2. SYNTHROID [Concomitant]
  3. KLONOPIN [Concomitant]

REACTIONS (7)
  - BACK PAIN [None]
  - BLOOD PRESSURE INADEQUATELY CONTROLLED [None]
  - BLOOD PRESSURE INCREASED [None]
  - DYSPNOEA [None]
  - HEADACHE [None]
  - HYPOAESTHESIA [None]
  - PULSE ABNORMAL [None]
